FAERS Safety Report 5647748-9 (Version None)
Quarter: 2008Q1

REPORT INFORMATION
  Report Type: 
  Country: None (occurrence: None)
  Receive Date: 20080303
  Receipt Date: 20080206
  Transmission Date: 20080703
  Serious: Yes (Other)
  Sender: FDA-Public Use
  Company Number: JP-MERCK-0802USA01846

PATIENT
  Age: 57 Year
  Sex: Male

DRUGS (6)
  1. DECADRON [Suspect]
     Indication: MULTIPLE MYELOMA
     Route: 048
  2. DECADRON [Suspect]
     Route: 048
  3. ALKERAN [Suspect]
     Indication: MULTIPLE MYELOMA
     Route: 065
  4. ALKERAN [Suspect]
     Route: 065
  5. ADRIACIN [Suspect]
     Indication: MULTIPLE MYELOMA
     Route: 042
  6. ADRIACIN [Suspect]
     Route: 042

REACTIONS (1)
  - HEPATITIS B [None]
